FAERS Safety Report 9234086 (Version 1)
Quarter: 2013Q2

REPORT INFORMATION
  Report Type: Spontaneous
  Country: KR (occurrence: KR)
  Receive Date: 20130416
  Receipt Date: 20130416
  Transmission Date: 20140414
  Serious: Yes (Death, Other)
  Sender: FDA-Public Use
  Company Number: KR-JNJFOC-20130408549

PATIENT
  Age: 63 Year
  Sex: Male

DRUGS (19)
  1. FINIBAX [Suspect]
     Indication: PNEUMONIA
     Route: 042
     Dates: start: 20121015, end: 20121027
  2. FINIBAX [Suspect]
     Indication: PNEUMONIA
     Route: 042
     Dates: start: 20120914, end: 20120917
  3. FINIBAX [Suspect]
     Indication: PNEUMONIA
     Route: 042
     Dates: start: 20120918, end: 20121014
  4. MUTERAN [Concomitant]
     Route: 065
     Dates: start: 20120620, end: 20121027
  5. MUCOMYST (ACETYLCYSTEINE) [Concomitant]
     Dosage: 800MG/4ML
     Route: 065
     Dates: start: 20120605, end: 20121028
  6. BERASIL [Concomitant]
     Route: 065
     Dates: start: 20120627, end: 20121027
  7. LASIX [Concomitant]
     Route: 065
     Dates: start: 20120606, end: 20120918
  8. GASTER [Concomitant]
     Dosage: BRAND NAME: DONGA GASTER
     Route: 065
     Dates: start: 20120620, end: 20121027
  9. K-CONTIN CONTINUS [Concomitant]
     Route: 065
     Dates: start: 20120621, end: 20121011
  10. MIDRON [Concomitant]
     Route: 065
     Dates: start: 20120706, end: 20120918
  11. OXYCONTIN [Concomitant]
     Route: 065
     Dates: start: 20120607, end: 20121027
  12. KALIMATE KUNWHA [Concomitant]
     Dosage: 5G/P
     Route: 065
     Dates: start: 20121013, end: 20121013
  13. RIFAMPICIN [Concomitant]
     Dosage: RIFODEX
     Route: 065
     Dates: start: 20120712, end: 20121027
  14. TARIVID TAEJOON [Concomitant]
     Dosage: 3MG/G
     Route: 047
     Dates: start: 20120903, end: 20121012
  15. PENIRAMIN [Concomitant]
     Route: 065
     Dates: start: 20120518, end: 20120925
  16. LASIX [Concomitant]
     Dosage: 20MG/2ML
     Route: 065
     Dates: start: 20120604, end: 20121011
  17. NORPIN [Concomitant]
     Route: 065
     Dates: start: 20120619, end: 20121027
  18. SODIUM BICARBONATE [Concomitant]
     Dosage: 8.4%
     Route: 065
     Dates: start: 20120620, end: 20121011
  19. DENOGAN [Concomitant]
     Route: 065
     Dates: start: 20120518, end: 20121011

REACTIONS (1)
  - Respiratory failure [Fatal]
